FAERS Safety Report 25682398 (Version 2)
Quarter: 2025Q3

REPORT INFORMATION
  Report Type: Spontaneous
  Country: US (occurrence: US)
  Receive Date: 20250814
  Receipt Date: 20250903
  Transmission Date: 20251020
  Serious: Yes (Other)
  Sender: TEVA
  Company Number: US-TEVA-VS-3359730

PATIENT
  Age: 79 Year
  Sex: Female

DRUGS (5)
  1. PREDNISONE [Suspect]
     Active Substance: PREDNISONE
     Indication: Drug eruption
     Route: 065
  2. APREMILAST [Suspect]
     Active Substance: APREMILAST
     Indication: Drug eruption
     Route: 065
  3. NELVUTAMIG [Suspect]
     Active Substance: NELVUTAMIG
     Indication: Metastatic renal cell carcinoma
     Route: 065
  4. DUPILUMAB [Suspect]
     Active Substance: DUPILUMAB
     Indication: Drug eruption
     Route: 065
  5. NIVOLUMAB [Suspect]
     Active Substance: NIVOLUMAB
     Indication: Metastatic renal cell carcinoma
     Route: 065

REACTIONS (2)
  - Drug eruption [Recovering/Resolving]
  - Drug ineffective [Unknown]
